FAERS Safety Report 5867419-3 (Version None)
Quarter: 2008Q3

REPORT INFORMATION
  Report Type: 
  Country: None (occurrence: None)
  Receive Date: 20080902
  Receipt Date: 20080902
  Transmission Date: 20090109
  Serious: Yes (Hospitalization)
  Sender: FDA-Public Use
  Company Number: PHEH1996US06385

PATIENT
  Sex: Female
  Weight: 74.411 kg

DRUGS (6)
  1. SANDIMMUNE [Suspect]
     Route: 048
     Dates: start: 19950812
  2. MORPHINE [Concomitant]
  3. PREDNISONE TAB [Concomitant]
  4. CAPOTEN [Concomitant]
  5. FOLIC ACID [Concomitant]
  6. MAGNESIUM OXIDE [Concomitant]

REACTIONS (4)
  - CHEST PAIN [None]
  - DRUG ERUPTION [None]
  - HERPES ZOSTER [None]
  - LIVER FUNCTION TEST ABNORMAL [None]
